FAERS Safety Report 6076719-6 (Version None)
Quarter: 2009Q1

REPORT INFORMATION
  Report Type: 
  Country: None (occurrence: None)
  Receive Date: 20090213
  Receipt Date: 20090203
  Transmission Date: 20090719
  Serious: Yes (Other)
  Sender: FDA-Public Use
  Company Number: US-NOVOPROD-283879

PATIENT
  Sex: Female

DRUGS (1)
  1. VAGIFEM [Suspect]
     Indication: VULVOVAGINAL DRYNESS
     Dosage: ONCE A WEEK
     Route: 067
     Dates: start: 20081101

REACTIONS (2)
  - BREAST ENLARGEMENT [None]
  - RENAL DISORDER [None]
